FAERS Safety Report 4682070-9 (Version None)
Quarter: 2005Q2

REPORT INFORMATION
  Report Type: 
  Country: None (occurrence: None)
  Receive Date: 20050602
  Receipt Date: 20050517
  Transmission Date: 20051028
  Serious: Yes (Hospitalization)
  Sender: FDA-Public Use
  Company Number: 213996

PATIENT
  Age: 64 Year
  Sex: Female
  Weight: 66.6 kg

DRUGS (8)
  1. BEVACIZUMAB OR PLACEBO (BEVACIZUMAB OR PLACEBO) PWDR + SOLVENT, INFUSI [Suspect]
     Indication: CLEAR CELL CARCINOMA OF THE KIDNEY
     Dosage: 10 MG/KG, Q2W, INTRAVENOUS
     Route: 042
     Dates: start: 20040824, end: 20050414
  2. INTERFERON ALFA-2A (INTERFERON  ALFA -2A) [Suspect]
     Indication: CLEAR CELL CARCINOMA OF THE KIDNEY
     Dosage: 9 MIU, Q3W, SUBCUTANEOUS
     Route: 058
     Dates: start: 20040824
  3. DEXAMETHASONE [Concomitant]
  4. COVERSYL (PERINDOPRIL) [Concomitant]
  5. XALATAN [Concomitant]
  6. CARDIZEM [Concomitant]
  7. METOCLOPRAMIDE (METOCLOPRAMIDE HYDROCHLORIDE) [Concomitant]
  8. DEXAMETHASONE [Concomitant]

REACTIONS (9)
  - DIZZINESS [None]
  - HEADACHE [None]
  - IMPAIRED HEALING [None]
  - LARGE INTESTINE PERFORATION [None]
  - PELVIC ABSCESS [None]
  - POSTOPERATIVE WOUND COMPLICATION [None]
  - SMALL INTESTINAL OBSTRUCTION [None]
  - WOUND DEHISCENCE [None]
  - WOUND DRAINAGE [None]
